FAERS Safety Report 8000527-X (Version None)
Quarter: 2011Q4

REPORT INFORMATION
  Report Type: 
  Country: None (occurrence: None)
  Receive Date: 20111222
  Receipt Date: 20111212
  Transmission Date: 20120403
  Serious: Yes (Hospitalization, Other)
  Sender: FDA-Public Use
  Company Number: BE-UCBSA-041489

PATIENT
  Age: 42 Year
  Sex: Male
  Weight: 71 kg

DRUGS (4)
  1. KEPPRA [Suspect]
     Route: 048
     Dates: end: 20110101
  2. VIMPAT [Suspect]
     Indication: EPILEPSY
     Route: 048
     Dates: start: 20110815, end: 20110101
  3. DUSPATALIN [Concomitant]
  4. TOPAMAX [Suspect]
     Route: 048

REACTIONS (3)
  - TOXIC ENCEPHALOPATHY [None]
  - WEIGHT DECREASED [None]
  - ASTHENIA [None]
